FAERS Safety Report 5107621-1 (Version None)
Quarter: 2006Q3

REPORT INFORMATION
  Report Type: 
  Country: None (occurrence: None)
  Receive Date: 20060919
  Receipt Date: 20060914
  Transmission Date: 20061208
  Serious: Yes (Hospitalization)
  Sender: FDA-Public Use
  Company Number: US-BRISTOL-MYERS SQUIBB COMPANY-13509120

PATIENT
  Age: 73 Year
  Sex: Male
  Weight: 81 kg

DRUGS (10)
  1. ERBITUX [Suspect]
     Indication: COLORECTAL CANCER METASTATIC
     Route: 042
     Dates: start: 20060906, end: 20060906
  2. AVASTIN [Suspect]
     Indication: COLORECTAL CANCER METASTATIC
     Route: 042
     Dates: start: 20060829, end: 20060830
  3. FLUOROURACIL [Suspect]
     Indication: COLORECTAL CANCER METASTATIC
     Route: 042
     Dates: start: 20060830, end: 20060830
  4. LEUCOVORIN CALCIUM [Suspect]
     Indication: COLORECTAL CANCER METASTATIC
     Dates: start: 20060830, end: 20060830
  5. CORTISONE [Concomitant]
     Indication: ARTHRITIS
     Route: 048
  6. AVASTIN [Concomitant]
     Indication: CHEMOTHERAPY
     Dates: start: 20060329
  7. FLUOROURACIL [Concomitant]
     Indication: CHEMOTHERAPY
     Route: 042
     Dates: start: 20060329
  8. KYTRIL [Concomitant]
     Indication: PREMEDICATION
     Route: 042
     Dates: start: 20060329
  9. DECADRON [Concomitant]
     Indication: PREMEDICATION
     Dates: start: 20060329
  10. FLUDROCORTISON [Concomitant]
     Indication: ADRENAL INSUFFICIENCY
     Route: 048

REACTIONS (1)
  - DEEP VEIN THROMBOSIS [None]
